FAERS Safety Report 6028575-X (Version None)
Quarter: 2008Q4

REPORT INFORMATION
  Report Type: 
  Country: None (occurrence: None)
  Receive Date: 20081222
  Receipt Date: 20081031
  Transmission Date: 20090506
  Serious: No
  Sender: FDA-Public Use
  Company Number: US-WYE-H06648108

PATIENT
  Age: 46 Year
  Sex: Male
  Weight: 136.2 kg

DRUGS (15)
  1. PRISTIQ [Suspect]
     Indication: DEPRESSION
     Dosage: 50 MG 1X PER 1 DAY, ORAL
     Route: 048
     Dates: start: 20081022
  2. AMBIEN CR [Concomitant]
  3. WELLBUTRIN XL [Concomitant]
  4. TENORMIN [Concomitant]
  5. CATAPRES [Concomitant]
  6. ZESTRIL [Concomitant]
  7. NOVOLOG [Concomitant]
  8. LANTUS [Concomitant]
  9. XANAX [Concomitant]
  10. METFORMIN HCL [Concomitant]
  11. ZYRTEC [Concomitant]
  12. SYNTHROID [Concomitant]
  13. SEROQUEL [Concomitant]
  14. SINGULAIR [Concomitant]
  15. IMDUR [Concomitant]

REACTIONS (1)
  - BLOOD GLUCOSE DECREASED [None]
